FAERS Safety Report 11308160 (Version 1)
Quarter: 2015Q3

REPORT INFORMATION
  Report Type: Spontaneous
  Country: US (occurrence: US)
  Receive Date: 20150724
  Receipt Date: 20150724
  Transmission Date: 20151125
  Serious: Yes (Death, Other)
  Sender: FDA-Public Use
  Company Number: US-AMGEN-USASP2015073598

PATIENT
  Age: 67 Year
  Sex: Male

DRUGS (1)
  1. ENBREL [Suspect]
     Active Substance: ETANERCEPT
     Indication: RHEUMATOID ARTHRITIS
     Dosage: UNK
     Route: 065

REACTIONS (7)
  - Death [Fatal]
  - Brain cancer metastatic [Unknown]
  - Lung neoplasm malignant [Unknown]
  - Seizure [Unknown]
  - Thrombosis [Unknown]
  - Surgery [Unknown]
  - Headache [Unknown]
